FAERS Safety Report 25108802 (Version 1)
Quarter: 2025Q1

REPORT INFORMATION
  Report Type: Spontaneous
  Country: PL (occurrence: PL)
  Receive Date: 20250322
  Receipt Date: 20250322
  Transmission Date: 20250409
  Serious: Yes (Life-Threatening)
  Sender: ABBVIE
  Company Number: None

PATIENT
  Age: 17 Year
  Sex: Female
  Weight: 56 kg

DRUGS (2)
  1. CITALOPRAM [Suspect]
     Active Substance: CITALOPRAM
     Indication: Product used for unknown indication
     Route: 048
  2. OLANZAPINE [Suspect]
     Active Substance: OLANZAPINE
     Indication: Product used for unknown indication
     Route: 065

REACTIONS (6)
  - Dysarthria [Recovered/Resolved]
  - Suicide attempt [Recovered/Resolved]
  - Psychomotor retardation [Recovered/Resolved]
  - Somnolence [Recovered/Resolved]
  - Product administered to patient of inappropriate age [Unknown]
  - Intentional overdose [Unknown]
